FAERS Safety Report 21986789 (Version 1)
Quarter: 2023Q1

REPORT INFORMATION
  Report Type: Report from Study
  Country: US (occurrence: US)
  Receive Date: 20230213
  Receipt Date: 20230213
  Transmission Date: 20230418
  Serious: Yes (Death)
  Sender: FDA-Public Use
  Company Number: US-MYLANLABS-2023M1016276

PATIENT
  Age: 68 Year
  Sex: Male

DRUGS (4)
  1. EVEROLIMUS [Suspect]
     Active Substance: EVEROLIMUS
     Indication: Anaplastic thyroid cancer
     Dosage: UNK
     Route: 065
  2. LENVATINIB [Suspect]
     Active Substance: LENVATINIB
     Indication: Anaplastic thyroid cancer
     Dosage: UNK
     Route: 065
  3. EFATUTAZONE [Suspect]
     Active Substance: EFATUTAZONE
     Indication: Anaplastic thyroid cancer
     Dosage: UNK
     Route: 065
  4. NIVOLUMAB [Suspect]
     Active Substance: NIVOLUMAB
     Indication: Anaplastic thyroid cancer
     Dosage: UNK
     Route: 042

REACTIONS (1)
  - Drug ineffective [Fatal]
